FAERS Safety Report 20603816 (Version 1)
Quarter: 2022Q1

REPORT INFORMATION
  Report Type: Other
  Country: IR (occurrence: None)
  Receive Date: 20220316
  Receipt Date: 20220316
  Transmission Date: 20220423
  Serious: No
  Sender: FDA-Public Use
  Company Number: IR-DEXPHARM-20220364

PATIENT
  Age: 67 Year
  Sex: Female

DRUGS (16)
  1. DEXAMETHASONE [Suspect]
     Active Substance: DEXAMETHASONE
  2. ATAZANAVIR [Suspect]
     Active Substance: ATAZANAVIR
  3. AZITHROMYCIN [Suspect]
     Active Substance: AZITHROMYCIN
  4. CEFTRIAXONE [Suspect]
     Active Substance: CEFTRIAXONE
  5. FAMOTIDINE [Concomitant]
     Active Substance: FAMOTIDINE
  6. HEPARIN [Suspect]
     Active Substance: HEPARIN SODIUM
  7. METHYLPREDNISOLONE [Suspect]
     Active Substance: METHYLPREDNISOLONE
  8. FUROSEMIDE [Concomitant]
     Active Substance: FUROSEMIDE
  9. LOPINAVIR\RITONAVIR [Suspect]
     Active Substance: LOPINAVIR\RITONAVIR
  10. INSULIN NOS [Suspect]
     Active Substance: INSULIN NOS
  11. PIPERACILLIN SODIUM\TAZOBACTAM SODIUM [Concomitant]
     Active Substance: PIPERACILLIN SODIUM\TAZOBACTAM SODIUM
  12. LINEZOLID [Concomitant]
     Active Substance: LINEZOLID
  13. MONTELUKAST [Suspect]
     Active Substance: MONTELUKAST SODIUM
  14. FLUTICASONE PROPIONATE\SALMETEROL XINAFOATE [Suspect]
     Active Substance: FLUTICASONE PROPIONATE\SALMETEROL XINAFOATE
  15. ENOXAPARIN SODIUM [Suspect]
     Active Substance: ENOXAPARIN SODIUM
  16. ASPIRIN [Suspect]
     Active Substance: ASPIRIN

REACTIONS (7)
  - Haemoperitoneum [Unknown]
  - Acute kidney injury [Unknown]
  - Pneumonia [Unknown]
  - Hyperglycaemia [Unknown]
  - Oliguria [Unknown]
  - Pleural effusion [Unknown]
  - Anaemia [Unknown]
